FAERS Safety Report 5280627-8 (Version None)
Quarter: 2007Q1

REPORT INFORMATION
  Report Type: 
  Country: None (occurrence: None)
  Receive Date: 20070329
  Receipt Date: 20070322
  Transmission Date: 20070707
  Serious: Yes (Other)
  Sender: FDA-Public Use
  Company Number: 2007UW03020

PATIENT
  Sex: Female
  Weight: 0.8 kg

DRUGS (3)
  1. SEROQUEL [Suspect]
     Dosage: 25 TO 50 MG
     Route: 015
     Dates: start: 20061003, end: 20061108
  2. SEROQUEL [Suspect]
     Route: 015
     Dates: start: 20061109
  3. CARBOLITH [Suspect]
     Route: 048

REACTIONS (4)
  - BLOOD GLUCOSE INCREASED [None]
  - HAND DEFORMITY [None]
  - PATENT DUCTUS ARTERIOSUS [None]
  - PREMATURE BABY [None]
